FAERS Safety Report 9912777 (Version 1)
Quarter: 2014Q1

REPORT INFORMATION
  Report Type: Spontaneous
  Country: US (occurrence: US)
  Receive Date: 20140220
  Receipt Date: 20140220
  Transmission Date: 20141002
  Serious: No
  Sender: FDA-Public Use
  Company Number: US-PFIZER INC-2014044485

PATIENT
  Age: 73 Year
  Sex: Male

DRUGS (1)
  1. XALKORI [Suspect]
     Indication: LUNG NEOPLASM MALIGNANT
     Dosage: 250 MG, TAKE ONE CAPSULE TWICE DAILY
     Dates: start: 20140114

REACTIONS (3)
  - Local swelling [Unknown]
  - Asthenia [Unknown]
  - Feeling cold [Unknown]
